FAERS Safety Report 21510104 (Version 1)
Quarter: 2022Q4

REPORT INFORMATION
  Report Type: Spontaneous
  Country: US (occurrence: None)
  Receive Date: 20221026
  Receipt Date: 20221026
  Transmission Date: 20230113
  Serious: No
  Sender: FDA-Public Use
  Company Number: US-NESTLEHEALTHSCIENCE-2022000107

PATIENT
  Weight: 64 kg

DRUGS (1)
  1. ZENPEP [Suspect]
     Active Substance: PANCRELIPASE AMYLASE\PANCRELIPASE LIPASE\PANCRELIPASE PROTEASE
     Indication: Pancreatic failure
     Dosage: MIXING CAPSULES INTO APPLESAUCE AND LET IT SIT FOR A BIT AND SLOWLY PUSH IT INTO THE G-TUBE

REACTIONS (2)
  - Device occlusion [Unknown]
  - Product use issue [Unknown]
